FAERS Safety Report 6688755-7 (Version None)
Quarter: 2010Q2

REPORT INFORMATION
  Report Type: 
  Country: None (occurrence: None)
  Receive Date: 20100420
  Receipt Date: 20100412
  Transmission Date: 20101027
  Serious: Yes (Hospitalization)
  Sender: FDA-Public Use
  Company Number: B0648011A

PATIENT
  Sex: Female

DRUGS (4)
  1. LANOXIN [Suspect]
     Indication: DRUG USE FOR UNKNOWN INDICATION
     Dosage: 1U PER DAY
     Route: 065
  2. SOTALEX [Suspect]
     Indication: DRUG USE FOR UNKNOWN INDICATION
     Dosage: 80MG PER DAY
     Route: 048
  3. LANSOX [Concomitant]
     Dosage: 30MG PER DAY
     Route: 048
  4. TRIATEC [Concomitant]
     Dosage: 5MG PER DAY
     Route: 048

REACTIONS (2)
  - BRADYCARDIA [None]
  - SYNCOPE [None]
